FAERS Safety Report 8454594-X (Version None)
Quarter: 2012Q2

REPORT INFORMATION
  Report Type: 
  Country: None (occurrence: None)
  Receive Date: 20120621
  Receipt Date: 20120611
  Transmission Date: 20120825
  Serious: No
  Sender: FDA-Public Use
  Company Number: US-BIOGENIDEC-2012BI020635

PATIENT
  Age: 49 Year
  Sex: Female

DRUGS (3)
  1. AVONEX [Suspect]
     Indication: MULTIPLE SCLEROSIS
     Route: 030
     Dates: start: 19961101, end: 20000301
  2. AVONEX [Suspect]
     Route: 030
     Dates: start: 20120601
  3. AVONEX [Suspect]
     Route: 030
     Dates: start: 20091122, end: 20120501

REACTIONS (3)
  - INJECTION SITE INFECTION [None]
  - INJECTION SITE HAEMATOMA [None]
  - CONTUSION [None]
